FAERS Safety Report 10165803 (Version 2)
Quarter: 2014Q2

REPORT INFORMATION
  Report Type: Spontaneous
  Country: US (occurrence: US)
  Receive Date: 20140510
  Receipt Date: 20140510
  Transmission Date: 20141212
  Serious: No
  Sender: FDA-Public Use
  Company Number: US-BRISTOL-MYERS SQUIBB COMPANY-19941269

PATIENT
  Age: 58 Year
  Sex: Male
  Weight: 109.75 kg

DRUGS (2)
  1. BYDUREON [Suspect]
     Route: 058
  2. METFORMIN [Concomitant]

REACTIONS (8)
  - Injection site nodule [Recovering/Resolving]
  - Injection site pruritus [Unknown]
  - Injection site haemorrhage [Unknown]
  - Skin exfoliation [Unknown]
  - Product quality issue [Unknown]
  - Skin irritation [Unknown]
  - Underdose [Unknown]
  - Injection site extravasation [Unknown]
